FAERS Safety Report 7943996-3 (Version None)
Quarter: 2011Q4

REPORT INFORMATION
  Report Type: 
  Country: None (occurrence: None)
  Receive Date: 20111128
  Receipt Date: 20111114
  Transmission Date: 20120403
  Serious: Yes (Hospitalization)
  Sender: FDA-Public Use
  Company Number: FR-ROCHE-1013182

PATIENT
  Age: 62 Year
  Sex: Female
  Weight: 56 kg

DRUGS (11)
  1. PREDNISONE TAB [Concomitant]
     Route: 048
  2. SPECIAFOLDINE [Concomitant]
  3. NEORAL [Suspect]
     Indication: MUSCULAR WEAKNESS
     Route: 048
  4. OMEPRAZOLE [Concomitant]
  5. ATORVASTATIN CALCIUM [Concomitant]
  6. MESTINON [Concomitant]
  7. METHOTREXATE SODIUM [Suspect]
     Dates: start: 20080501
  8. ACTEMRA [Suspect]
     Indication: RHEUMATOID ARTHRITIS
     Route: 042
     Dates: start: 20100501, end: 20110707
  9. METHOTREXATE SODIUM [Suspect]
     Indication: RHEUMATOID ARTHRITIS
     Route: 058
  10. ACTONEL [Concomitant]
  11. COVERAM [Concomitant]

REACTIONS (2)
  - OSTEITIS [None]
  - LUNG DISORDER [None]
